FAERS Safety Report 17345847 (Version 1)
Quarter: 2020Q1

REPORT INFORMATION
  Report Type: Spontaneous
  Country: MX (occurrence: MX)
  Receive Date: 20200129
  Receipt Date: 20200129
  Transmission Date: 20200409
  Serious: Yes (Life-Threatening, Hospitalization, Other)
  Sender: FDA-Public Use
  Company Number: NVSC2020MX012182

PATIENT
  Age: 48 Year

DRUGS (1)
  1. REVOLADE [Suspect]
     Active Substance: ELTROMBOPAG
     Indication: IMMUNE THROMBOCYTOPENIC PURPURA
     Dosage: 50 MG, QD
     Route: 048
     Dates: start: 201910, end: 20200116

REACTIONS (16)
  - Blood pressure decreased [Recovered/Resolved]
  - Myocardial necrosis marker increased [Recovered/Resolved]
  - Troponin I increased [Recovered/Resolved]
  - Coronary artery occlusion [Recovered/Resolved]
  - Electrocardiogram ST segment elevation [Recovered/Resolved]
  - Abdominal pain upper [Recovered/Resolved]
  - Blood creatine phosphokinase increased [Recovered/Resolved]
  - Myocardial ischaemia [Recovered/Resolved]
  - Nausea [Recovered/Resolved]
  - Troponin increased [Recovered/Resolved]
  - Haemodynamic instability [Recovered/Resolved]
  - Platelet count decreased [Recovered/Resolved]
  - Blood creatine phosphokinase MB increased [Recovered/Resolved]
  - Chest pain [Recovered/Resolved]
  - Fibrin D dimer increased [Recovered/Resolved]
  - Subendocardial ischaemia [Recovered/Resolved]

NARRATIVE: CASE EVENT DATE: 20191226
